FAERS Safety Report 21713616 (Version 2)
Quarter: 2022Q4

REPORT INFORMATION
  Report Type: Spontaneous
  Country: US (occurrence: US)
  Receive Date: 20221212
  Receipt Date: 20221216
  Transmission Date: 20230112
  Serious: Yes (Other)
  Sender: FDA-Public Use
  Company Number: US-AMERICAN REGENT INC-2022003533

PATIENT

DRUGS (2)
  1. GEMCITABINE [Suspect]
     Active Substance: GEMCITABINE
     Indication: Adenocarcinoma pancreas
     Dosage: 1000 MG/ M2 INTRAVENOUSLY ON DAYS 1, 8, 15 FOR 2 CYCLES
     Route: 042
  2. ALISERTIB [Suspect]
     Active Substance: ALISERTIB
     Indication: Adenocarcinoma pancreas
     Dosage: 50 MG ORALLY TWICE DAILY (BID) ON DAYS 1-3, 8-10, AND 15-17 OF A 28-DAY TREATMENT CYCLE FOR TWO CYCL
     Route: 048

REACTIONS (4)
  - Dehydration [Unknown]
  - Acute kidney injury [Unknown]
  - Diarrhoea [Unknown]
  - Vomiting [Unknown]
